FAERS Safety Report 24398091 (Version 1)
Quarter: 2024Q4

REPORT INFORMATION
  Report Type: Spontaneous
  Country: US (occurrence: None)
  Receive Date: 20241003
  Receipt Date: 20241003
  Transmission Date: 20250115
  Serious: Yes (Life-Threatening, Hospitalization, Disabling, Other)
  Sender: Public
  Company Number: None

PATIENT
  Age: 31 Year
  Sex: Female
  Weight: 63 kg

DRUGS (1)
  1. HYDROXYZINE [Suspect]
     Active Substance: HYDROXYZINE HYDROCHLORIDE
     Indication: Anxiety
     Dosage: OTHER FREQUENCY : 3X DAILY AS NEEDED;?
     Route: 048
     Dates: start: 20220801, end: 20221218

REACTIONS (14)
  - Withdrawal syndrome [None]
  - Chills [None]
  - Insomnia [None]
  - Vomiting [None]
  - Confusional state [None]
  - Delirium [None]
  - Disorganised speech [None]
  - Therapy cessation [None]
  - Agitation [None]
  - Pain [None]
  - Dysphonia [None]
  - Screaming [None]
  - Postpartum stress disorder [None]
  - Road traffic accident [None]

NARRATIVE: CASE EVENT DATE: 20230101
